FAERS Safety Report 12470671 (Version 1)
Quarter: 2016Q2

REPORT INFORMATION
  Report Type: Spontaneous
  Country: US (occurrence: None)
  Receive Date: 20160615
  Receipt Date: 20160615
  Transmission Date: 20160815
  Serious: No
  Sender: FDA-Public Use
  Company Number: None

PATIENT
  Age: 38 Year
  Sex: Male
  Weight: 124.74 kg

DRUGS (3)
  1. LAMICTAL [Concomitant]
     Active Substance: LAMOTRIGINE
  2. ZECUITY [Suspect]
     Active Substance: SUMATRIPTAN SUCCINATE
     Indication: MIGRAINE
     Dosage: 1 PATCH(ES) AS NEEDED APPLIED AS MEDICATED PATCH TO SKIN
     Route: 061
     Dates: start: 20160612, end: 20160612
  3. ZONISAMIDE. [Concomitant]
     Active Substance: ZONISAMIDE

REACTIONS (8)
  - Application site irritation [None]
  - Nausea [None]
  - Product adhesion issue [None]
  - Burns first degree [None]
  - Migraine [None]
  - Musculoskeletal stiffness [None]
  - Application site pain [None]
  - Chemical injury [None]

NARRATIVE: CASE EVENT DATE: 20160612
